FAERS Safety Report 8433485-4 (Version None)
Quarter: 2012Q2

REPORT INFORMATION
  Report Type: 
  Country: None (occurrence: None)
  Receive Date: 20120613
  Receipt Date: 20120605
  Transmission Date: 20120825
  Serious: Yes (Other)
  Sender: FDA-Public Use
  Company Number: US-US-EMD SERONO, INC.-7026858

PATIENT
  Sex: Female
  Weight: 73 kg

DRUGS (9)
  1. TRIPLE FLEX [Concomitant]
     Indication: SUPPLEMENTATION THERAPY
  2. MULTIVIVTAMIN [Concomitant]
     Indication: SUPPLEMENTATION THERAPY
  3. COD LIVER OIL [Concomitant]
     Indication: SUPPLEMENTATION THERAPY
  4. LIPITOR [Concomitant]
     Indication: DYSLIPIDAEMIA
  5. CALCIUM PLUS VITAMIN D [Concomitant]
     Indication: OSTEOPOROSIS
  6. REBIF [Suspect]
     Indication: RELAPSING-REMITTING MULTIPLE SCLEROSIS
     Route: 058
     Dates: start: 20100211, end: 20100611
  7. PROTONIX [Concomitant]
     Indication: GASTROOESOPHAGEAL REFLUX DISEASE
  8. ASTELIN [Concomitant]
     Indication: RHINITIS
     Route: 045
  9. FOSAMAX [Concomitant]
     Indication: OSTEOPOROSIS

REACTIONS (2)
  - PAROXYSMAL NOCTURNAL HAEMOGLOBINURIA [None]
  - PANCYTOPENIA [None]
